FAERS Safety Report 21983781 (Version 1)
Quarter: 2023Q1

REPORT INFORMATION
  Report Type: Spontaneous
  Country: US (occurrence: None)
  Receive Date: 20230210
  Receipt Date: 20230210
  Transmission Date: 20230418
  Serious: Yes (Other)
  Sender: FDA-Public Use
  Company Number: None

PATIENT

DRUGS (1)
  1. XIIDRA [Suspect]
     Active Substance: LIFITEGRAST
     Dates: start: 20221105, end: 20221106

REACTIONS (10)
  - Eye irritation [None]
  - Ocular hyperaemia [None]
  - Eye pain [None]
  - Rash [None]
  - Blister [None]
  - Oral mucosal blistering [None]
  - Swollen tongue [None]
  - Bladder outlet obstruction [None]
  - Gastric pH decreased [None]
  - Immunodeficiency [None]

NARRATIVE: CASE EVENT DATE: 20221109
